FAERS Safety Report 8720609 (Version 3)
Quarter: 2012Q4

REPORT INFORMATION
  Report Type: 
  Country: US (occurrence: US)
  Receive Date: 20120813
  Receipt Date: 20120924
  Transmission Date: 20130627
  Serious: Yes (Hospitalization, Other)
  Sender: FDA-Public Use
  Company Number: US-BAYER-2012-071606

PATIENT
  Age: 70 Year
  Sex: Male
  Weight: 83.9 kg

DRUGS (14)
  1. NEXAVAR [Suspect]
     Indication: HEPATIC NEOPLASM MALIGNANT
     Dosage: 200 mg, BID
     Route: 048
     Dates: start: 20120710, end: 20120728
  2. NEXAVAR [Suspect]
     Indication: HEPATIC NEOPLASM MALIGNANT
     Dosage: 400 mg, BID
     Dates: start: 201207, end: 201207
  3. NEXAVAR [Suspect]
     Indication: HEPATIC NEOPLASM MALIGNANT
     Dosage: 200 mg, BID
     Dates: start: 201207
  4. NEXAVAR [Suspect]
     Indication: HEPATIC NEOPLASM MALIGNANT
     Dosage: 400 mg, BID
  5. LOSARTAN [Concomitant]
     Dosage: 100/12.5
     Route: 048
  6. SYSTANE [BORIC AC,CACL DIHYDR,MACROGOL,MGCL ANHYDR,KCL,PROPYL GLYC [Concomitant]
  7. KETOTIFEN [Concomitant]
     Route: 047
  8. OPHTHALMOLOGICALS [Concomitant]
  9. AMLODIPINE [Concomitant]
     Dosage: 5 mg, UNK
  10. CENTRUM SILVER [Concomitant]
  11. SENEKOT [Concomitant]
     Dosage: 8.6 mg, UNK
  12. STOOL SOFTENER [Concomitant]
     Dosage: 50 mg, UNK
  13. FINASTERIDE [Concomitant]
     Dosage: 5 mg, UNK
  14. METOPROLOL [Concomitant]
     Dosage: 25 mg, UNK

REACTIONS (20)
  - Blood pressure increased [Recovering/Resolving]
  - Chest pain [Recovering/Resolving]
  - Blister [Not Recovered/Not Resolved]
  - Infrequent bowel movements [Not Recovered/Not Resolved]
  - Pancreatic enzymes increased [Not Recovered/Not Resolved]
  - Blood phosphorus decreased [Not Recovered/Not Resolved]
  - Fatigue [Not Recovered/Not Resolved]
  - Abdominal pain upper [Recovering/Resolving]
  - Eating disorder [Not Recovered/Not Resolved]
  - Weight decreased [Not Recovered/Not Resolved]
  - Gastrooesophageal reflux disease [Not Recovered/Not Resolved]
  - Pyrexia [Recovered/Resolved]
  - White blood cell count increased [Recovering/Resolving]
  - Blood pressure increased [Recovered/Resolved]
  - Labile blood pressure [Unknown]
  - Decreased appetite [Unknown]
  - Pain in extremity [Not Recovered/Not Resolved]
  - Hyperkeratosis [Not Recovered/Not Resolved]
  - Dysphonia [Not Recovered/Not Resolved]
  - Flatulence [Recovering/Resolving]
